FAERS Safety Report 10159086 (Version 1)
Quarter: 2014Q2

REPORT INFORMATION
  Report Type: Spontaneous
  Country: US (occurrence: US)
  Receive Date: 20140508
  Receipt Date: 20140508
  Transmission Date: 20141212
  Serious: Yes (Other)
  Sender: FDA-Public Use
  Company Number: US-BEH-2014042428

PATIENT
  Age: 14 Year
  Sex: Female

DRUGS (3)
  1. IVIG [Suspect]
     Route: 042
  2. IVIG [Suspect]
     Indication: ENCEPHALITIS AUTOIMMUNE
     Route: 042
  3. IVMP [Concomitant]
     Indication: ENCEPHALITIS AUTOIMMUNE
     Route: 042

REACTIONS (2)
  - Autoimmune haemolytic anaemia [Recovered/Resolved]
  - Haemolytic anaemia [Unknown]
